FAERS Safety Report 6182310-3 (Version None)
Quarter: 2009Q2

REPORT INFORMATION
  Report Type: 
  Country: None (occurrence: None)
  Receive Date: 20090505
  Receipt Date: 20090426
  Transmission Date: 20091009
  Serious: Yes (Hospitalization)
  Sender: FDA-Public Use
  Company Number: 230001M09ITA

PATIENT
  Age: 41 Year
  Sex: Female

DRUGS (2)
  1. REBIF [Suspect]
     Indication: MULTIPLE SCLEROSIS
     Dosage: 44 MCG, SUBCUTANEOUS
     Route: 058
     Dates: start: 20080626, end: 20081119
  2. TACHIPIRINA (PARACETAMOL) [Concomitant]

REACTIONS (3)
  - HAEMOGLOBIN DECREASED [None]
  - HEPATITIS CHOLESTATIC [None]
  - PLATELET COUNT DECREASED [None]
